FAERS Safety Report 24140747 (Version 4)
Quarter: 2024Q4

REPORT INFORMATION
  Report Type: Spontaneous
  Country: GB (occurrence: GB)
  Receive Date: 20240726
  Receipt Date: 20241009
  Transmission Date: 20250114
  Serious: Yes (Disabling, Other)
  Sender: MYLAN
  Company Number: GB-MYLANLABS-2024M1069514

PATIENT
  Age: 94 Year
  Sex: Female

DRUGS (8)
  1. PHENYTOIN [Suspect]
     Active Substance: PHENYTOIN
     Indication: Epilepsy
     Dosage: 125 MILLIGRAM, QD (ONCE A DAY)
     Route: 048
     Dates: start: 200402, end: 202309
  2. LEVETIRACETAM [Concomitant]
     Active Substance: LEVETIRACETAM
     Indication: Seizure
     Dosage: 250 MILLIGRAM, BID (2 IN 1 D)
     Route: 065
  3. ASPIRIN [Concomitant]
     Active Substance: ASPIRIN
     Indication: Product used for unknown indication
     Dosage: 75 MILLIGRAM, QD (ONCE A DAY)
     Route: 065
     Dates: start: 20240821
  4. CARBOCYSTEINE [Concomitant]
     Active Substance: CARBOCYSTEINE
     Indication: Product used for unknown indication
     Dosage: 375 MILLIGRAM, TID (TWO CAPSULES THREE TIMES A DAY)
     Route: 065
     Dates: start: 20240911
  5. GABAPENTIN [Concomitant]
     Active Substance: GABAPENTIN
     Indication: Product used for unknown indication
     Dosage: 100 MILLIGRAM, PM (ONE CAPSULE EACH NIGHT)
     Route: 065
     Dates: start: 20240911
  6. LANSOPRAZOLE [Concomitant]
     Active Substance: LANSOPRAZOLE
     Indication: Product used for unknown indication
     Dosage: 15 MILLIGRAM, QD (ONCE A DAY)
     Route: 065
     Dates: start: 20240726
  7. LEVOTHYROXINE SODIUM [Concomitant]
     Active Substance: LEVOTHYROXINE SODIUM
     Indication: Product used for unknown indication
     Dosage: 50 MICROGRAM, AM (ONE TO BE TAKEN EACH MORNING PREFERABLY 30-60 MINUTES BEFORE BREAKFAST, AFFEINE-CO
     Route: 065
     Dates: start: 20240802
  8. ROSUVASTATIN [Concomitant]
     Active Substance: ROSUVASTATIN
     Indication: Product used for unknown indication
     Dosage: 5 MILLIGRAM, QD (ONCE A DAY)
     Route: 065
     Dates: start: 20240726

REACTIONS (7)
  - Mobility decreased [Unknown]
  - Neuropathy peripheral [Not Recovered/Not Resolved]
  - Emotional distress [Unknown]
  - Muscle spasms [Unknown]
  - Hypoaesthesia [Unknown]
  - Poor quality sleep [Unknown]
  - Paraesthesia [Unknown]

NARRATIVE: CASE EVENT DATE: 20150101
